FAERS Safety Report 8126070-5 (Version None)
Quarter: 2012Q1

REPORT INFORMATION
  Report Type: 
  Country: None (occurrence: None)
  Receive Date: 20120209
  Receipt Date: 20120128
  Transmission Date: 20120608
  Serious: Yes (Other)
  Sender: FDA-Public Use
  Company Number: PHFR2012GB000903

PATIENT
  Sex: Male

DRUGS (8)
  1. PANTOPRAZOLE [Concomitant]
  2. CLOZARIL [Suspect]
     Dosage: 100 MG AM AND 100 MG NOCTE
     Route: 048
  3. MEBEVERINE [Concomitant]
  4. CLOZARIL [Suspect]
     Indication: SCHIZOPHRENIA
     Route: 048
     Dates: start: 20120111
  5. ARIPIPRAZOLE [Concomitant]
  6. LAMICTAL [Concomitant]
  7. MIRTAZAPINE [Concomitant]
  8. PROCYCLIDINE HYDROCHLORIDE 2MG TAB [Concomitant]

REACTIONS (9)
  - BLOOD PRESSURE DECREASED [None]
  - HEADACHE [None]
  - DIZZINESS [None]
  - MUSCLE RIGIDITY [None]
  - TACHYCARDIA [None]
  - HYPOPHAGIA [None]
  - SOMNOLENCE [None]
  - PSYCHOSOMATIC DISEASE [None]
  - ASTHENIA [None]
